FAERS Safety Report 10475184 (Version 2)
Quarter: 2014Q4

REPORT INFORMATION
  Report Type: Spontaneous
  Country: FI (occurrence: FI)
  Receive Date: 20140925
  Receipt Date: 20141013
  Transmission Date: 20150528
  Serious: Yes (Hospitalization, Other)
  Sender: FDA-Public Use
  Company Number: FI-AMGEN-FINSP2014072994

PATIENT
  Age: 65 Year
  Sex: Female

DRUGS (7)
  1. ENBREL [Suspect]
     Active Substance: ETANERCEPT
     Indication: RHEUMATOID ARTHRITIS
     Dosage: 50 MG, WEEKLY
     Route: 058
     Dates: start: 200810, end: 20140826
  2. PANADOL FORTE [Concomitant]
     Indication: PAIN
     Dosage: 1 DF, 1-3X/DAY
     Route: 048
  3. OPTINATE SEPTIMUM [Concomitant]
     Active Substance: RISEDRONATE SODIUM
     Indication: OSTEOPOROSIS
     Dosage: 35 MG, WEEKLY
     Route: 048
     Dates: start: 2011
  4. PREDNISOLON                        /00016201/ [Concomitant]
     Active Substance: PREDNISOLONE
     Indication: RHEUMATIC DISORDER
     Dosage: 5 MG, DAILY
     Route: 048
     Dates: start: 1984
  5. THYROXIN [Concomitant]
     Active Substance: LEVOTHYROXINE
     Indication: HYPOTHYROIDISM
     Dosage: AT A DAILY DOSE OF 0.1 MG ON EVEN AND 0.05 MG ON UNEVEN DATES
     Route: 048
  6. SIMVASTATIN. [Concomitant]
     Active Substance: SIMVASTATIN
     Indication: HYPERCHOLESTEROLAEMIA
     Dosage: 10 MG, 1X/DAY
     Route: 048
  7. CALCICHEW-D3 FORTE [Concomitant]
     Active Substance: CALCIUM\CHOLECALCIFEROL
     Indication: OSTEOPENIA
     Dosage: 1 DF, 1X/DAY
     Route: 048

REACTIONS (4)
  - Metastases to lymph nodes [Recovered/Resolved with Sequelae]
  - Metastases to breast [Recovered/Resolved with Sequelae]
  - Invasive ductal breast carcinoma [Recovered/Resolved with Sequelae]
  - Colorectal adenocarcinoma [Unknown]

NARRATIVE: CASE EVENT DATE: 20140601
